FAERS Safety Report 12120005 (Version 1)
Quarter: 2016Q1

REPORT INFORMATION
  Report Type: Report from Study
  Country: US (occurrence: US)
  Receive Date: 20160226
  Receipt Date: 20160226
  Transmission Date: 20160526
  Serious: Yes (Hospitalization, Other)
  Sender: FDA-Public Use
  Company Number: US-GILEAD-2016-0200372

PATIENT
  Age: 64 Year
  Sex: Female

DRUGS (21)
  1. LEUCOVORIN CALCIUM. [Concomitant]
     Active Substance: LEUCOVORIN CALCIUM
  2. FLUOXETINE [Concomitant]
     Active Substance: FLUOXETINE HYDROCHLORIDE
  3. AMBRISENTAN [Suspect]
     Active Substance: AMBRISENTAN
     Indication: PULMONARY HYPERTENSION
     Dosage: 10 MG, QD
     Route: 065
     Dates: start: 20120224
  4. TEMAZEPAM. [Concomitant]
     Active Substance: TEMAZEPAM
  5. ZYPREXA [Concomitant]
     Active Substance: OLANZAPINE
  6. NEXIUM [Concomitant]
     Active Substance: ESOMEPRAZOLE MAGNESIUM
  7. PAXIL [Concomitant]
     Active Substance: PAROXETINE HYDROCHLORIDE
  8. IRON [Concomitant]
     Active Substance: IRON
  9. MIRTAZAPINE. [Concomitant]
     Active Substance: MIRTAZAPINE
  10. VITAMIN D                          /00107901/ [Concomitant]
     Active Substance: ERGOCALCIFEROL
  11. OXYCODONE [Concomitant]
     Active Substance: OXYCODONE
  12. ADCIRCA [Concomitant]
     Active Substance: TADALAFIL
  13. ADVAIR HFA [Concomitant]
     Active Substance: FLUTICASONE PROPIONATE\SALMETEROL XINAFOATE
  14. SPIRIVA [Concomitant]
     Active Substance: TIOTROPIUM BROMIDE MONOHYDRATE
  15. FOLIC ACID. [Concomitant]
     Active Substance: FOLIC ACID
  16. LOTEMAX [Concomitant]
     Active Substance: LOTEPREDNOL ETABONATE
  17. ASPIRIN                            /00002701/ [Concomitant]
     Active Substance: ASPIRIN
  18. VITAMIN B12 [Concomitant]
     Active Substance: CYANOCOBALAMIN
  19. FISH OIL [Concomitant]
     Active Substance: FISH OIL
  20. LORAZEPAM. [Concomitant]
     Active Substance: LORAZEPAM
  21. LIDODERM [Concomitant]
     Active Substance: LIDOCAINE

REACTIONS (1)
  - Pneumonia [Recovered/Resolved]

NARRATIVE: CASE EVENT DATE: 20160220
